FAERS Safety Report 5708710-0 (Version None)
Quarter: 2008Q2

REPORT INFORMATION
  Report Type: 
  Country: None (occurrence: None)
  Receive Date: 20080417
  Receipt Date: 20080108
  Transmission Date: 20081010
  Serious: Yes (Hospitalization, Other)
  Sender: FDA-Public Use
  Company Number: US-BOEHRINGER INGELHEIM GMBH, GERMANY-2007-BP-21976BP

PATIENT
  Sex: Female
  Weight: 82 kg

DRUGS (28)
  1. MIRAPEX [Suspect]
     Indication: PARKINSON'S DISEASE
     Route: 048
     Dates: start: 19981007, end: 20040101
  2. SINEMET CR [Concomitant]
  3. VOLTAREN [Concomitant]
  4. INDERAL [Concomitant]
  5. ARTANE [Concomitant]
  6. SINEMET [Concomitant]
  7. REMERON [Concomitant]
  8. DEPAKOTE [Concomitant]
  9. LITHIUM CARBONATE [Concomitant]
  10. PAXIL [Concomitant]
  11. PROZAC [Concomitant]
  12. RISPERDAL [Concomitant]
  13. DAYPRO [Concomitant]
  14. MENTAX TOPICAL CREAM [Concomitant]
     Route: 061
  15. LASIX [Concomitant]
  16. CELEXA [Concomitant]
  17. NEURONTIN [Concomitant]
  18. TEQUIN [Concomitant]
  19. WELLBUTRIN [Concomitant]
  20. VIOXX [Concomitant]
  21. VICODIN [Concomitant]
  22. ROBAXIN [Concomitant]
  23. DARVOCET-N 100 [Concomitant]
  24. NAPROXEN [Concomitant]
  25. CHARCOAL [Concomitant]
  26. LORTAB [Concomitant]
  27. COMTAN [Concomitant]
  28. ADVIL [Concomitant]

REACTIONS (7)
  - DEPRESSION [None]
  - EMOTIONAL DISTRESS [None]
  - HYPERPHAGIA [None]
  - OBSESSIVE-COMPULSIVE DISORDER [None]
  - PATHOLOGICAL GAMBLING [None]
  - SUICIDE ATTEMPT [None]
  - WEIGHT INCREASED [None]
